FAERS Safety Report 23139347 (Version 2)
Quarter: 2024Q1

REPORT INFORMATION
  Report Type: Spontaneous
  Country: PT (occurrence: PT)
  Receive Date: 20231102
  Receipt Date: 20240125
  Transmission Date: 20240410
  Serious: Yes (Death)
  Sender: FDA-Public Use
  Company Number: PT-ROCHE-3447057

PATIENT
  Age: 57 Year
  Sex: Female

DRUGS (23)
  1. FEMARA [Suspect]
     Active Substance: LETROZOLE
     Indication: Breast cancer metastatic
     Dosage: 2.5 MG, QD (LAST DOSE ON 10/NOV/2020)
     Route: 048
     Dates: start: 20181031, end: 20201110
  2. HERCEPTIN [Suspect]
     Active Substance: TRASTUZUMAB
     Indication: HER2 positive breast cancer
     Dosage: 600 MG, Q3W
     Route: 058
     Dates: start: 20181031, end: 20191024
  3. MAGNESIUM [Concomitant]
     Active Substance: MAGNESIUM
     Indication: Hypomagnesaemia
     Dosage: UNK
     Route: 065
     Dates: start: 20200220, end: 20200615
  4. MAGNESIUM [Concomitant]
     Active Substance: MAGNESIUM
     Dosage: UNK, QD
     Route: 065
     Dates: start: 20200220, end: 2020
  5. INSULIN HUMAN [Concomitant]
     Active Substance: INSULIN HUMAN
     Indication: Product used for unknown indication
     Dosage: UNK, QD (22 UNITS)
     Route: 065
     Dates: end: 20200615
  6. BUDESONIDE [Concomitant]
     Active Substance: BUDESONIDE
     Indication: Product used for unknown indication
     Dosage: UNK
     Route: 065
     Dates: end: 20200615
  7. WARFARIN SODIUM [Concomitant]
     Active Substance: WARFARIN SODIUM
     Indication: Product used for unknown indication
     Dosage: UNK
     Route: 065
     Dates: end: 20200615
  8. ATORVASTATIN [Concomitant]
     Active Substance: ATORVASTATIN
     Indication: Product used for unknown indication
     Dosage: UNK
     Route: 065
     Dates: end: 20200615
  9. ENALAPRIL [Concomitant]
     Active Substance: ENALAPRIL
     Indication: Product used for unknown indication
     Dosage: UNK
     Route: 065
     Dates: start: 20181016, end: 20200615
  10. FORMOTEROL [Concomitant]
     Active Substance: FORMOTEROL
     Indication: Product used for unknown indication
     Dosage: UNK
     Route: 065
     Dates: end: 20200615
  11. CALCIUM [Concomitant]
     Active Substance: CALCIUM
     Indication: Product used for unknown indication
     Dosage: UNK
     Route: 065
     Dates: start: 20181031, end: 20200615
  12. PANTOPRAZOLE [Concomitant]
     Active Substance: PANTOPRAZOLE
     Indication: Product used for unknown indication
     Dosage: 0.25 UNK, QD (PR (PER RECTUM))
     Route: 065
     Dates: end: 20200615
  13. SUGAMMADEX [Concomitant]
     Active Substance: SUGAMMADEX
     Indication: Anaesthesia
     Dosage: 200 MG, QD
     Route: 065
     Dates: start: 20190607, end: 20190607
  14. FENTANYL [Concomitant]
     Active Substance: FENTANYL\FENTANYL CITRATE
     Indication: Anaesthesia
     Dosage: UNK, QD (0.20)
     Route: 065
     Dates: start: 20190607, end: 20190607
  15. PARECOXIB [Concomitant]
     Active Substance: PARECOXIB
     Indication: Product used for unknown indication
     Dosage: 40 MG, QD
     Route: 065
     Dates: start: 20190607, end: 20190607
  16. PROPOFOL [Concomitant]
     Active Substance: PROPOFOL
     Indication: Anaesthesia
     Dosage: 200 MG, QD
     Route: 065
     Dates: start: 20190607, end: 20190607
  17. CLEMASTINE [Concomitant]
     Active Substance: CLEMASTINE
     Indication: Product used for unknown indication
     Dosage: 2 MG, TIW
     Route: 065
     Dates: start: 20181031, end: 20191024
  18. METHYLPREDNISOLONE [Concomitant]
     Active Substance: METHYLPREDNISOLONE
     Indication: Product used for unknown indication
     Dosage: 125 MG, TIW
     Route: 065
     Dates: start: 20181031, end: 20191024
  19. MIDAZOLAM [Concomitant]
     Active Substance: MIDAZOLAM
     Indication: Anaesthesia
     Dosage: 5 MG, QD
     Route: 065
     Dates: start: 20190607, end: 20190607
  20. DEXAMETHASONE [Concomitant]
     Active Substance: DEXAMETHASONE
     Indication: Anaesthesia
     Dosage: 4 MG, QD
     Route: 065
     Dates: start: 20190607, end: 20190607
  21. ROCURONIUM [Concomitant]
     Active Substance: ROCURONIUM BROMIDE
     Indication: Anaesthesia
     Dosage: 70 MG, QD
     Route: 065
     Dates: start: 20190607, end: 20190607
  22. ONDANSETRON [Concomitant]
     Active Substance: ONDANSETRON
     Indication: Anaesthesia
     Dosage: 4 MG, QD
     Route: 065
     Dates: start: 20190607, end: 20190607
  23. ACETAMINOPHEN [Concomitant]
     Active Substance: ACETAMINOPHEN
     Indication: Anaesthesia
     Dosage: 1 G, QD
     Route: 065
     Dates: start: 20190607, end: 20190607

REACTIONS (1)
  - Pancreatic carcinoma [Fatal]

NARRATIVE: CASE EVENT DATE: 20200615
